FAERS Safety Report 7621129-0 (Version None)
Quarter: 2011Q3

REPORT INFORMATION
  Report Type: 
  Country: None (occurrence: None)
  Receive Date: 20110719
  Receipt Date: 20110712
  Transmission Date: 20111222
  Serious: Yes (Hospitalization)
  Sender: FDA-Public Use
  Company Number: US-PFIZER INC-2011157361

PATIENT
  Sex: Female

DRUGS (6)
  1. PERCOCET [Concomitant]
  2. DAYPRO [Suspect]
     Dosage: 600 MG, 1X/DAY
     Route: 048
     Dates: start: 20010901
  3. LOVENOX [Suspect]
     Dosage: 140 MG, 1X/DAY
     Route: 058
     Dates: start: 19990101
  4. LASIX [Concomitant]
  5. FLONASE [Concomitant]
  6. ACIPHEX [Concomitant]

REACTIONS (4)
  - CHEST PAIN [None]
  - DYSPNOEA [None]
  - NAUSEA [None]
  - GASTROOESOPHAGEAL REFLUX DISEASE [None]
